FAERS Safety Report 23298001 (Version 1)
Quarter: 2023Q4

REPORT INFORMATION
  Report Type: Report from Study
  Country: CR (occurrence: CR)
  Receive Date: 20231214
  Receipt Date: 20231214
  Transmission Date: 20240109
  Serious: Yes (Life-Threatening, Other)
  Sender: FDA-Public Use
  Company Number: CR-002147023-NVSC2022CR146067

PATIENT
  Age: 72 Year
  Sex: Female

DRUGS (2)
  1. EXFORGE HCT [Suspect]
     Active Substance: AMLODIPINE BESYLATE\HYDROCHLOROTHIAZIDE\VALSARTAN
     Indication: Hypertension
     Dosage: 5/160/12.5 MG
     Route: 065
     Dates: start: 202108
  2. EXFORGE HCT [Suspect]
     Active Substance: AMLODIPINE BESYLATE\HYDROCHLOROTHIAZIDE\VALSARTAN
     Dosage: 10/320/25 MG QD
     Route: 048
     Dates: start: 2021, end: 202310

REACTIONS (12)
  - Feeling abnormal [Unknown]
  - Coeliac disease [Recovering/Resolving]
  - Anaemia [Recovered/Resolved]
  - Weight decreased [Unknown]
  - Fatigue [Unknown]
  - Dizziness [Unknown]
  - Hypertension [Recovered/Resolved]
  - Procedural haemorrhage [Unknown]
  - Hypotension [Recovered/Resolved]
  - Blood pressure systolic increased [Unknown]
  - Arthralgia [Unknown]
  - Asthenia [Unknown]

NARRATIVE: CASE EVENT DATE: 20230801
